FAERS Safety Report 6859903-0 (Version None)
Quarter: 2010Q3

REPORT INFORMATION
  Report Type: 
  Country: None (occurrence: None)
  Receive Date: 20100720
  Receipt Date: 20100708
  Transmission Date: 20110219
  Serious: Yes (Other)
  Sender: FDA-Public Use
  Company Number: JP-SHIRE-SPV1-2010-00792

PATIENT

DRUGS (11)
  1. LANTHANUM CARBONATE [Suspect]
     Indication: HYPERPHOSPHATAEMIA
     Dosage: 750 MG TOTAL DAILY DOSE (IMMEDIATELY AFTER MEALS)
     Route: 048
     Dates: start: 20090603, end: 20090804
  2. LANTHANUM CARBONATE [Suspect]
     Dosage: 1500 MG TOTAL DAILY DOSE (IMMEDIATELY AFTER MEALS)
     Route: 048
     Dates: start: 20090805, end: 20090917
  3. CALCIUM CARBONATE [Concomitant]
     Indication: HYPERPHOSPHATAEMIA
     Dosage: 1500 MG, UNKNOWN
     Route: 048
     Dates: start: 20090701, end: 20091020
  4. CALCIUM CARBONATE [Concomitant]
     Dosage: 4500 MG, UNKNOWN
     Route: 048
  5. CALCIUM CARBONATE [Concomitant]
     Dosage: 3000 MG, UNKNOWN
     Route: 048
     Dates: start: 20090603, end: 20090630
  6. CALCIUM CARBONATE [Concomitant]
     Dosage: 3000 MG, UNKNOWN
     Route: 048
     Dates: start: 20091021, end: 20091103
  7. CALCIUM CARBONATE [Concomitant]
     Dosage: 4500 MG, UNKNOWN
     Route: 048
     Dates: start: 20091104
  8. ZYLORIC                            /00003301/ [Concomitant]
     Indication: PRODUCT USED FOR UNKNOWN INDICATION
     Dosage: 100 MG, UNKNOWN
     Route: 048
  9. SELBEX [Concomitant]
     Indication: PRODUCT USED FOR UNKNOWN INDICATION
     Dosage: 150 MG, UNKNOWN
     Route: 048
  10. NESP [Concomitant]
     Indication: PRODUCT USED FOR UNKNOWN INDICATION
     Dosage: 15 UG, UNKNOWN
     Route: 042
  11. FESIN [Concomitant]
     Indication: PRODUCT USED FOR UNKNOWN INDICATION
     Dosage: 40 MG, UNKNOWN
     Route: 042

REACTIONS (3)
  - BLOOD PARATHYROID HORMONE INCREASED [None]
  - HEPATIC FUNCTION ABNORMAL [None]
  - NAUSEA [None]
